FAERS Safety Report 4814716-6 (Version None)
Quarter: 2005Q4

REPORT INFORMATION
  Report Type: 
  Country: None (occurrence: None)
  Receive Date: 20051028
  Receipt Date: 20051013
  Transmission Date: 20060501
  Serious: Yes (Disabling)
  Sender: FDA-Public Use
  Company Number: GBWYE054513OCT05

PATIENT
  Age: 52 Year
  Sex: Male
  Weight: 77 kg

DRUGS (7)
  1. ENBREL [Suspect]
     Indication: RHEUMATOID ARTHRITIS
     Route: 058
     Dates: start: 20030801, end: 20050201
  2. HUMIRA [Suspect]
     Indication: RHEUMATOID ARTHRITIS
     Dosage: 40MG, FREQUENCY NOT STATED
     Route: 058
     Dates: start: 20050201, end: 20050901
  3. ACTONEL [Concomitant]
     Route: 048
  4. PREDNISOLONE [Concomitant]
     Route: 048
  5. LANSOPRAZOLE [Concomitant]
     Dosage: 30MG, FREQUENCY NOT STATED
     Route: 048
  6. CALCICHEW-D3 [Concomitant]
     Route: 048
  7. METHOTREXATE [Concomitant]

REACTIONS (1)
  - BRONCHIOLITIS [None]
